FAERS Safety Report 6595193-4 (Version None)
Quarter: 2010Q1

REPORT INFORMATION
  Report Type: 
  Country: None (occurrence: None)
  Receive Date: 20100212
  Receipt Date: 20100204
  Transmission Date: 20100710
  Serious: Yes (Hospitalization)
  Sender: FDA-Public Use
  Company Number: WAES 1002USA01033

PATIENT
  Age: 22 Year
  Sex: Male
  Weight: 96.6162 kg

DRUGS (7)
  1. ISENTRESS [Suspect]
     Indication: HIV INFECTION
     Dosage: 400 MG/BID/PO
     Route: 048
     Dates: start: 20090319
  2. DARUNAVIR UNK [Suspect]
     Indication: HIV INFECTION
     Dosage: 600 MG/BID/PO
     Route: 048
     Dates: start: 20090319
  3. ENFUVIRTIDE UNK [Suspect]
     Indication: HIV INFECTION
     Dosage: 90 MG/BID/SC
     Route: 058
     Dates: start: 20090319
  4. RITONAVIR [Suspect]
     Indication: HIV INFECTION
     Dosage: 100 MG/BID/PO
     Route: 048
     Dates: start: 20090319
  5. CENTRUM [Concomitant]
  6. TRICOR [Concomitant]
  7. PRAVASTATIN SODIUM [Concomitant]

REACTIONS (3)
  - DISTURBANCE IN ATTENTION [None]
  - DIZZINESS [None]
  - HEADACHE [None]
